FAERS Safety Report 8529017-2 (Version None)
Quarter: 2012Q3

REPORT INFORMATION
  Report Type: 
  Country: None (occurrence: None)
  Receive Date: 20120723
  Receipt Date: 20120712
  Transmission Date: 20120928
  Serious: Yes (Hospitalization, Other)
  Sender: FDA-Public Use
  Company Number: GB-ACCORD-014019

PATIENT
  Age: 50 Year
  Sex: Female

DRUGS (6)
  1. AMOXICILLIN [Concomitant]
  2. TOPIRAMATE [Suspect]
     Dosage: 300 MG, UNK
     Route: 048
     Dates: start: 20070101, end: 20120121
  3. MIRTAZAPINE [Suspect]
     Indication: DEPRESSIVE SYMPTOM
     Dosage: 45 MG, UNK
     Route: 048
     Dates: start: 20060101, end: 20120121
  4. ZOPICLONE [Concomitant]
  5. CLOZARIL [Suspect]
     Indication: SCHIZOPHRENIA
     Dosage: 75 MG, UNK
     Dates: start: 20120112, end: 20120117
  6. ANTIBIOTICS [Concomitant]

REACTIONS (10)
  - EOSINOPHIL COUNT DECREASED [None]
  - TOOTHACHE [None]
  - NEUTROPENIA [None]
  - SCRATCH [None]
  - OFF LABEL USE [None]
  - INJURY [None]
  - WHITE BLOOD CELL COUNT DECREASED [None]
  - ROAD TRAFFIC ACCIDENT [None]
  - PLATELET COUNT DECREASED [None]
  - TOOTH INFECTION [None]
